FAERS Safety Report 18992819 (Version 2)
Quarter: 2021Q1

REPORT INFORMATION
  Report Type: Report from Study
  Country: IN (occurrence: IN)
  Receive Date: 20210310
  Receipt Date: 20210317
  Transmission Date: 20210420
  Serious: Yes (Death)
  Sender: FDA-Public Use
  Company Number: IN-PFIZER INC-2021247840

PATIENT
  Age: 58 Year
  Sex: Male
  Weight: 61.6 kg

DRUGS (8)
  1. ASPIRIN. [Concomitant]
     Active Substance: ASPIRIN
     Dosage: 75 MG, 1X/DAY
     Route: 048
     Dates: start: 20210204, end: 20210305
  2. OMNACORTIL [PREDNISOLONE] [Concomitant]
     Dosage: 10 MG, 3X/DAY
     Route: 048
     Dates: start: 20210211, end: 20210305
  3. VORICONAZOLE. [Concomitant]
     Active Substance: VORICONAZOLE
     Dosage: 200 MG, 2X/DAY
     Route: 048
     Dates: start: 20210208, end: 20210305
  4. PF?06463922 [Suspect]
     Active Substance: LORLATINIB
     Dosage: 100 UNK
     Route: 048
     Dates: start: 20210106, end: 20210303
  5. PLAVIX [Concomitant]
     Active Substance: CLOPIDOGREL BISULFATE
     Dosage: 75 MG, 1X/DAY
     Route: 048
     Dates: start: 20210204, end: 20210305
  6. ATORVASTATIN [Concomitant]
     Active Substance: ATORVASTATIN
     Dosage: 20 MG
     Dates: start: 20210204, end: 20210305
  7. PF?06463922 [Suspect]
     Active Substance: LORLATINIB
     Dosage: 100 MG, 1X/DAY
     Route: 048
     Dates: start: 20210106, end: 20210204
  8. LASILACTON [Concomitant]
     Active Substance: FUROSEMIDE\SPIRONOLACTONE
     Dosage: 20/50MG, 1X/DAY
     Route: 048
     Dates: start: 20210219, end: 20210303

REACTIONS (1)
  - Pulmonary oedema [Fatal]

NARRATIVE: CASE EVENT DATE: 20210305
